FAERS Safety Report 17769967 (Version 1)
Quarter: 2020Q2

REPORT INFORMATION
  Report Type: Spontaneous
  Country: US (occurrence: US)
  Receive Date: 20200512
  Receipt Date: 20200512
  Transmission Date: 20200714
  Serious: No
  Sender: FDA-Public Use
  Company Number: US-KYOWAKIRIN-2020BKK007259

PATIENT

DRUGS (1)
  1. POTELIGEO [Suspect]
     Active Substance: MOGAMULIZUMAB-KPKC
     Indication: CUTANEOUS T-CELL LYMPHOMA STAGE III
     Dosage: UNK
     Route: 065
     Dates: start: 202001, end: 2020

REACTIONS (4)
  - Urticaria [Unknown]
  - Oral pain [Unknown]
  - Skin lesion [Unknown]
  - Contusion [Unknown]

NARRATIVE: CASE EVENT DATE: 2020
